FAERS Safety Report 8472248-0 (Version None)
Quarter: 2012Q2

REPORT INFORMATION
  Report Type: 
  Country: None (occurrence: None)
  Receive Date: 20120627
  Receipt Date: 20120619
  Transmission Date: 20120825
  Serious: Yes (Other)
  Sender: FDA-Public Use
  Company Number: US-JNJFOC-20120610002

PATIENT

DRUGS (18)
  1. PREDNISONE TAB [Suspect]
     Indication: CHRONIC LYMPHOCYTIC LEUKAEMIA
     Dosage: ON DAYS 1-5
     Route: 048
  2. PREDNISONE TAB [Suspect]
     Indication: B-CELL LYMPHOMA
     Dosage: ON DAYS 1-5
     Route: 048
  3. RITUXIMAB [Suspect]
     Dosage: MAINTENANCE
     Route: 042
  4. VELCADE [Suspect]
     Indication: CHRONIC LYMPHOCYTIC LEUKAEMIA
     Dosage: ON DAYS 1 AND 8
     Route: 042
  5. VELCADE [Suspect]
     Indication: B-CELL LYMPHOMA
     Dosage: ON DAYS 1 AND 8
     Route: 042
  6. DOXORUBICIN HCL [Suspect]
     Indication: B-CELL LYMPHOMA
     Dosage: ON DAY 1
     Route: 042
  7. VELCADE [Suspect]
     Dosage: ON DAYS 1 AND 8
     Route: 042
  8. RITUXIMAB [Suspect]
     Dosage: MAINTENANCE
     Route: 042
  9. RITUXIMAB [Suspect]
     Dosage: MAINTENANCE
     Route: 042
  10. PREDNISONE TAB [Suspect]
     Dosage: ON DAYS 1-5
     Route: 048
  11. CYCLOPHOSPHAMIDE [Suspect]
     Indication: CHRONIC LYMPHOCYTIC LEUKAEMIA
     Route: 042
  12. DOXORUBICIN HCL [Suspect]
     Dosage: ON DAY 1
     Route: 042
  13. RITUXIMAB [Suspect]
     Dosage: ON DAY 1
     Route: 042
  14. CYCLOPHOSPHAMIDE [Suspect]
     Indication: B-CELL LYMPHOMA
     Route: 042
  15. CYCLOPHOSPHAMIDE [Suspect]
     Route: 042
  16. DOXORUBICIN HCL [Suspect]
     Indication: CHRONIC LYMPHOCYTIC LEUKAEMIA
     Dosage: ON DAY 1
     Route: 042
  17. RITUXIMAB [Suspect]
     Indication: CHRONIC LYMPHOCYTIC LEUKAEMIA
     Dosage: ON DAY 1
     Route: 042
  18. RITUXIMAB [Suspect]
     Indication: B-CELL LYMPHOMA
     Dosage: ON DAY 1
     Route: 042

REACTIONS (10)
  - THROMBOCYTOPENIA [None]
  - NEUROPATHY PERIPHERAL [None]
  - CHILLS [None]
  - ANAEMIA [None]
  - NAUSEA [None]
  - ALOPECIA [None]
  - FATIGUE [None]
  - ADVERSE EVENT [None]
  - CONSTIPATION [None]
  - NEUTROPENIA [None]
